FAERS Safety Report 9948735 (Version 1)
Quarter: 2014Q1

REPORT INFORMATION
  Report Type: Report from Study
  Country: US (occurrence: US)
  Receive Date: 20140303
  Receipt Date: 20140303
  Transmission Date: 20141002
  Serious: No
  Sender: FDA-Public Use
  Company Number: US-ABBVIE-13P-163-1061263-00

PATIENT
  Age: 48 Year
  Sex: Female
  Weight: 51.3 kg

DRUGS (6)
  1. HUMIRA [Suspect]
     Indication: CROHN^S DISEASE
     Route: 058
     Dates: start: 20130221, end: 20130221
  2. HUMIRA [Suspect]
     Route: 058
     Dates: start: 20130307, end: 20130307
  3. VITAMIN E [Concomitant]
     Indication: PRODUCT USED FOR UNKNOWN INDICATION
  4. FOLIC ACID [Concomitant]
     Indication: PRODUCT USED FOR UNKNOWN INDICATION
  5. CELEBREX [Concomitant]
     Indication: OSTEOARTHRITIS
  6. B-12 [Concomitant]
     Indication: CROHN^S DISEASE
     Route: 050
     Dates: start: 2012

REACTIONS (2)
  - Injection site rash [Not Recovered/Not Resolved]
  - Injection site pruritus [Not Recovered/Not Resolved]
